FAERS Safety Report 7956587-5 (Version None)
Quarter: 2011Q4

REPORT INFORMATION
  Report Type: 
  Country: None (occurrence: None)
  Receive Date: 20111205
  Receipt Date: 20111129
  Transmission Date: 20120403
  Serious: Yes (Death, Other)
  Sender: FDA-Public Use
  Company Number: PHEH2011US009817

PATIENT
  Sex: Male

DRUGS (11)
  1. RITALIN [Concomitant]
  2. RADIOTHERAPY [Concomitant]
  3. HYDREA [Concomitant]
     Dosage: 1000 MG, DAILY
  4. WARFARIN SODIUM [Concomitant]
  5. HYDREA [Concomitant]
     Dosage: 2000 MG, DAILY
     Dates: end: 20110701
  6. ACYCLOVIR [Concomitant]
  7. PROCRIT [Concomitant]
     Dosage: 40000 U, WEEKLY X 8 WEEKS
  8. OXYCONTIN [Concomitant]
  9. VIDAZA [Concomitant]
     Dosage: 75 MG/M2, 2X7 DAYS
  10. EXJADE [Suspect]
     Dosage: 750 MG, QD
     Route: 048
  11. RED BLOOD CELLS [Concomitant]
     Dosage: 2 U, PER WEEK

REACTIONS (29)
  - BLOOD PRESSURE DECREASED [None]
  - MUSCLE SPASMS [None]
  - HEART RATE INCREASED [None]
  - SKIN LESION [None]
  - PAIN [None]
  - SPLEEN PALPABLE [None]
  - NEOPLASM PROGRESSION [None]
  - NEOPLASM MALIGNANT [None]
  - DYSSTASIA [None]
  - CACHEXIA [None]
  - WEIGHT DECREASED [None]
  - HERPES ZOSTER [None]
  - DYSPNOEA EXERTIONAL [None]
  - ABDOMINAL DISTENSION [None]
  - HEPATOSPLENOMEGALY [None]
  - FACIAL WASTING [None]
  - WHITE BLOOD CELL COUNT INCREASED [None]
  - TYMPANIC MEMBRANE DISORDER [None]
  - HYPOPHAGIA [None]
  - HEAD DISCOMFORT [None]
  - ERYTHEMA [None]
  - BLOOD CREATININE INCREASED [None]
  - DEAFNESS UNILATERAL [None]
  - EAR DISCOMFORT [None]
  - EARLY SATIETY [None]
  - MUSCLE ATROPHY [None]
  - FATIGUE [None]
  - HAEMOGLOBIN DECREASED [None]
  - DECREASED APPETITE [None]
